FAERS Safety Report 14789225 (Version 1)
Quarter: 2018Q2

REPORT INFORMATION
  Report Type: Spontaneous
  Country: US (occurrence: US)
  Receive Date: 20180423
  Receipt Date: 20180423
  Transmission Date: 20180711
  Serious: No
  Sender: FDA-Public Use
  Company Number: US-ALK-ABELLO A/S-2018AA000714

PATIENT

DRUGS (32)
  1. TAE BULK (402) ALTERNARIA ALTERNATA [Suspect]
     Active Substance: ALTERNARIA ALTERNATA
     Indication: HYPERSENSITIVITY
  2. STAE BULK 238 (CYNODON DACTYLON) [Suspect]
     Active Substance: CYNODON DACTYLON POLLEN
     Indication: HYPERSENSITIVITY
  3. TAE BULK 1318 (AMBROSIA ARTEMISIIFOLIA\305 AMBROSIA TRIFIDA) [Suspect]
     Active Substance: AMBROSIA ARTEMISIIFOLIA POLLEN\AMBROSIA TRIFIDA POLLEN
     Indication: HYPERSENSITIVITY
  4. TAE BULK 1330 (USTILAGO MAYDIS) [Suspect]
     Active Substance: USTILAGO MAYDIS
     Indication: HYPERSENSITIVITY
  5. TAE BULK 1166 PLATANUS OCCIDENTALIS [Suspect]
     Active Substance: PLATANUS OCCIDENTALIS POLLEN
     Indication: HYPERSENSITIVITY
  6. TAE BULK 168 FRAXINUS AMERICANA [Suspect]
     Active Substance: FRAXINUS AMERICANA POLLEN
     Indication: HYPERSENSITIVITY
  7. TAE BULK 367 (KOCHIA SCOPARIA) [Suspect]
     Active Substance: BASSIA SCOPARIA POLLEN
     Indication: HYPERSENSITIVITY
  8. TAE BULK 239 SORGHUM HALEPENSE [Suspect]
     Active Substance: SORGHUM HALEPENSE POLLEN
     Indication: HYPERSENSITIVITY
  9. TAE BULK 1139 (ACER SACCHARUM) [Suspect]
     Active Substance: ACER SACCHARUM POLLEN
     Indication: HYPERSENSITIVITY
  10. TAE BULK 1175 SALIX NIGRA [Suspect]
     Active Substance: SALIX NIGRA POLLEN
     Indication: HYPERSENSITIVITY
  11. TAE BULK 364 XANTHIUM COMMUNE [Suspect]
     Active Substance: XANTHIUM STRUMARIUM POLLEN
     Indication: HYPERSENSITIVITY
  12. STAE BULK 555 (FELIS DOMESTICUS) [Suspect]
     Active Substance: FELIS CATUS HAIR
     Indication: HYPERSENSITIVITY
  13. STAE BULK 228 POA PRATENSIS [Suspect]
     Active Substance: POA PRATENSIS POLLEN
     Indication: HYPERSENSITIVITY
  14. STAE BULK (503) DERMATOPHAGOIDES PTERONYSSINUS [Suspect]
     Active Substance: DERMATOPHAGOIDES PTERONYSSINUS
     Indication: HYPERSENSITIVITY
  15. TAE BULK 1322 (CLADOSPORIUM SPHAEROSPERMUM) [Suspect]
     Active Substance: CLADOSPORIUM SPHAEROSPERMUM
     Indication: HYPERSENSITIVITY
  16. TAE BULK 405 (ASPERGILLUS FUMIGATUS) [Suspect]
     Active Substance: ASPERGILLUS FUMIGATUS
     Indication: HYPERSENSITIVITY
  17. TAE BULK 1156 JUNIPERUS VIRGINIANA [Suspect]
     Active Substance: JUNIPERUS VIRGINIANA POLLEN
     Indication: HYPERSENSITIVITY
  18. TAE BULK 1143 (BETULA NIGRA) [Suspect]
     Active Substance: BETULA NIGRA POLLEN
     Indication: HYPERSENSITIVITY
  19. TAE BULK 156 (ULMUS AMERICANA) [Suspect]
     Active Substance: ULMUS AMERICANA POLLEN
     Indication: HYPERSENSITIVITY
  20. TAE BULK 1173 (QUERCUS RUBRA) [Suspect]
     Active Substance: QUERCUS RUBRA POLLEN
     Indication: HYPERSENSITIVITY
  21. TAE BULK 235 (ZEA MAYS) [Suspect]
     Active Substance: ZEA MAYS POLLEN
     Indication: HYPERSENSITIVITY
  22. TAE BULK 413 (CANDIDA ALBICANS) [Suspect]
     Active Substance: CANDIDA ALBICANS
     Indication: HYPERSENSITIVITY
  23. TAE BULK 158 (POPULUS DELTOIDS) [Suspect]
     Active Substance: POPULUS DELTOIDES POLLEN
     Indication: HYPERSENSITIVITY
  24. TAE BULK 153 (QUERCUS ALBA) [Suspect]
     Active Substance: QUERCUS ALBA POLLEN
     Indication: HYPERSENSITIVITY
  25. TAE BULK 322 CHENOPODIUM ALBUM [Suspect]
     Active Substance: CHENOPODIUM ALBUM POLLEN
     Indication: HYPERSENSITIVITY
  26. STAE BULK (504) DERMATOPHAGOIDES FARINAE [Suspect]
     Active Substance: DERMATOPHAGOIDES FARINAE
     Indication: HYPERSENSITIVITY
  27. TAE BULK 419 (FUSARIUM ROSEUM) [Suspect]
     Active Substance: GIBBERELLA ZEAE
     Indication: HYPERSENSITIVITY
  28. TAE BULK 553 (CANIS LUPUS FAMILIARIS) [Suspect]
     Active Substance: CANIS LUPUS FAMILIARIS SKIN
     Indication: HYPERSENSITIVITY
  29. TAE BULK 265 (521 ANAS SPP.\522 ANSER SPP.\523 GALLUS SPP.) [Suspect]
     Active Substance: ANAS PLATYRHYNCHOS FEATHER\ANSER ANSER FEATHER\GALLUS GALLUS FEATHER
     Indication: HYPERSENSITIVITY
  30. TAE BULK 823 PERIPLANETA AMERICANA [Suspect]
     Active Substance: PERIPLANETA AMERICANA
     Indication: HYPERSENSITIVITY
  31. TAE BULK 366 IVA CILIATA [Suspect]
     Active Substance: IVA ANNUA POLLEN
     Indication: HYPERSENSITIVITY
  32. TAE BULK 358 (RUMEX ACETOSELLA) [Suspect]
     Active Substance: RUMEX ACETOSELLA POLLEN
     Indication: HYPERSENSITIVITY

REACTIONS (2)
  - Rash [Unknown]
  - Off label use [Unknown]
